FAERS Safety Report 6125737-8 (Version None)
Quarter: 2009Q1

REPORT INFORMATION
  Report Type: 
  Country: None (occurrence: None)
  Receive Date: 20090318
  Receipt Date: 20090306
  Transmission Date: 20090719
  Serious: Yes (Hospitalization)
  Sender: FDA-Public Use
  Company Number: 2009AL001374

PATIENT
  Age: 39 Year
  Sex: Male

DRUGS (7)
  1. METFORMIN HCL [Suspect]
     Dates: start: 20090217
  2. SIMVASTATIN [Concomitant]
  3. CLOZARIL [Concomitant]
  4. HYOSCINE [Concomitant]
  5. CLOMIPRAMINE [Concomitant]
  6. LISINOPRIL [Concomitant]
  7. OMEPRAZOLE [Concomitant]

REACTIONS (3)
  - AGITATION [None]
  - GLASGOW COMA SCALE ABNORMAL [None]
  - OVERDOSE [None]
